FAERS Safety Report 20205940 (Version 2)
Quarter: 2022Q1

REPORT INFORMATION
  Report Type: Spontaneous
  Country: IE (occurrence: None)
  Receive Date: 20211220
  Receipt Date: 20220122
  Transmission Date: 20220424
  Serious: Yes (Hospitalization, Other)
  Sender: FDA-Public Use
  Company Number: IE-ROCHE-2946038

PATIENT
  Sex: Male
  Weight: 61.4 kg

DRUGS (1)
  1. POLIVY [Suspect]
     Active Substance: POLATUZUMAB VEDOTIN-PIIQ
     Indication: Diffuse large B-cell lymphoma refractory
     Route: 065

REACTIONS (2)
  - Disease progression [Unknown]
  - Deep vein thrombosis [Unknown]
